FAERS Safety Report 20799880 (Version 1)
Quarter: 2022Q2

REPORT INFORMATION
  Report Type: Spontaneous
  Country: US (occurrence: US)
  Receive Date: 20220509
  Receipt Date: 20220509
  Transmission Date: 20220721
  Serious: Yes (Death, Other)
  Sender: FDA-Public Use
  Company Number: US-BAYER-2022A062672

PATIENT
  Age: 59 Year
  Sex: Female

DRUGS (2)
  1. STIVARGA [Suspect]
     Active Substance: REGORAFENIB
     Indication: Product used for unknown indication
     Dosage: UNK
  2. LONSURF [Suspect]
     Active Substance: TIPIRACIL HYDROCHLORIDE\TRIFLURIDINE
     Indication: Colon cancer
     Dosage: 20 MG, BID (1 THROUGH DAY 5 FOLLOWED BY A RECOVERY, ADMINISTERED AGAIN ON DAY 8 THROUGH DAY 12, FOLL
     Route: 048

REACTIONS (2)
  - Death [Fatal]
  - Malignant neoplasm progression [None]

NARRATIVE: CASE EVENT DATE: 20220303
